FAERS Safety Report 15370664 (Version 1)
Quarter: 2018Q3

REPORT INFORMATION
  Report Type: Spontaneous
  Country: US (occurrence: US)
  Receive Date: 20180905
  Receipt Date: 20180905
  Transmission Date: 20181010
  Serious: Yes (Other)
  Sender: FDA-Public Use
  Company Number: None

PATIENT
  Age: 37 Year
  Sex: Male
  Weight: 67.5 kg

DRUGS (2)
  1. HYDROCODONE/ACETAMINOPHEN10?325 TB [Suspect]
     Active Substance: ACETAMINOPHEN\HYDROCODONE
     Indication: BACK PAIN
     Dosage: ?          QUANTITY:120 TABLET(S);?
     Route: 048
     Dates: start: 20180806, end: 20180904
  2. HYDROCODONE/ACETAMINOPHEN10?325 TB [Suspect]
     Active Substance: ACETAMINOPHEN\HYDROCODONE
     Indication: NEURALGIA
     Dosage: ?          QUANTITY:120 TABLET(S);?
     Route: 048
     Dates: start: 20180806, end: 20180904

REACTIONS (7)
  - Hypertension [None]
  - Anxiety [None]
  - Insomnia [None]
  - Product quality issue [None]
  - Drug ineffective [None]
  - Palpitations [None]
  - Product friable [None]

NARRATIVE: CASE EVENT DATE: 20180806
